FAERS Safety Report 8620418-0 (Version None)
Quarter: 2012Q3

REPORT INFORMATION
  Report Type: 
  Country: None (occurrence: None)
  Receive Date: 20120824
  Receipt Date: 20120820
  Transmission Date: 20120928
  Serious: Yes (Death, Hospitalization)
  Sender: FDA-Public Use
  Company Number: AT-GLAXOSMITHKLINE-B0824770A

PATIENT
  Sex: Male

DRUGS (12)
  1. VOTRIENT [Suspect]
     Indication: RENAL CANCER
     Dosage: 400MG PER DAY
     Route: 065
     Dates: start: 20120604
  2. PANTOPRAZOLE SODIUM [Concomitant]
     Route: 048
     Dates: start: 20120330
  3. XGEVA [Concomitant]
     Route: 058
     Dates: start: 20120626
  4. ONDANSETRON [Concomitant]
     Route: 042
  5. DEXAMETHASONE [Concomitant]
     Route: 048
     Dates: start: 20120529
  6. ZOFRAN [Concomitant]
     Route: 048
     Dates: start: 20120604
  7. AGAFFIN [Concomitant]
     Indication: CONSTIPATION
     Dates: start: 20120330
  8. AMPHO-MORONAL SUSPENSION [Concomitant]
     Dates: start: 20120604
  9. GEMZAR [Concomitant]
     Route: 042
     Dates: start: 20120404, end: 20120612
  10. PASPERTIN [Concomitant]
     Indication: NAUSEA
     Route: 048
     Dates: start: 20120330
  11. DICLOBENE RETARD [Concomitant]
     Dates: start: 20120529
  12. OXYCODONE HCL [Concomitant]
     Route: 048
     Dates: start: 20120330

REACTIONS (3)
  - THROMBOCYTOPENIA [None]
  - NEOPLASM PROGRESSION [None]
  - INTESTINAL PERFORATION [None]
